FAERS Safety Report 5118790-1 (Version None)
Quarter: 2006Q4

REPORT INFORMATION
  Report Type: 
  Country: None (occurrence: None)
  Receive Date: 20061002
  Receipt Date: 20060921
  Transmission Date: 20070319
  Serious: Yes (Other)
  Sender: FDA-Public Use
  Company Number: US-ROCHE-464570

PATIENT
  Age: 57 Year
  Sex: Male

DRUGS (2)
  1. ROCALTROL [Suspect]
     Indication: DRUG USE FOR UNKNOWN INDICATION
     Route: 065
     Dates: end: 20060815
  2. THYROID TAB [Suspect]
     Indication: HYPOTHYROIDISM
     Route: 048
     Dates: start: 20060415, end: 20060904

REACTIONS (6)
  - ALANINE AMINOTRANSFERASE INCREASED [None]
  - ASPARTATE AMINOTRANSFERASE INCREASED [None]
  - EAR PRURITUS [None]
  - MYALGIA [None]
  - RASH [None]
  - VIRAL LOAD INCREASED [None]
